FAERS Safety Report 9167176 (Version 5)
Quarter: 2013Q2

REPORT INFORMATION
  Report Type: Spontaneous
  Country: US (occurrence: US)
  Receive Date: 20130318
  Receipt Date: 20130514
  Transmission Date: 20140414
  Serious: Yes (Hospitalization)
  Sender: FDA-Public Use
  Company Number: US-BIOGENIDEC-2013BI023135

PATIENT
  Age: 49 Year
  Sex: Female
  Weight: 95 kg

DRUGS (22)
  1. TYSABRI [Suspect]
     Indication: MULTIPLE SCLEROSIS
     Route: 042
     Dates: start: 20120208
  2. HYDROCHLOROTHIAZIDE [Concomitant]
  3. STEROIDS [Concomitant]
  4. BACLOFEN [Concomitant]
  5. IMODIUM [Concomitant]
  6. DIOVAN [Concomitant]
  7. LIPITOR [Concomitant]
  8. LORAZEPAM [Concomitant]
  9. LAMICTAL [Concomitant]
  10. CLONAZEPAM [Concomitant]
  11. MELATONIN [Concomitant]
  12. EXCEDRIN [Concomitant]
  13. BUTALBITAL [Concomitant]
  14. VITAMIN D [Concomitant]
  15. FISH OIL [Concomitant]
  16. CRANBERRY TABLETS [Concomitant]
  17. FIORICET [Concomitant]
  18. NUVIGIL [Concomitant]
  19. PRILOSEC [Concomitant]
     Indication: GASTROOESOPHAGEAL REFLUX DISEASE
  20. ABILIFY [Concomitant]
     Indication: DEPRESSION
  21. LEXAPRO [Concomitant]
     Indication: DEPRESSION
  22. BLADDER MEDICATION (NOS) [Concomitant]
     Indication: INFECTION PROPHYLAXIS

REACTIONS (3)
  - Substance-induced psychotic disorder [Unknown]
  - Multiple sclerosis relapse [Recovered/Resolved]
  - Major depression [Recovered/Resolved]
